FAERS Safety Report 11047999 (Version 1)
Quarter: 2015Q2

REPORT INFORMATION
  Report Type: Spontaneous
  Country: US (occurrence: None)
  Receive Date: 20150417
  Receipt Date: 20150417
  Transmission Date: 20150821
  Serious: Yes (Hospitalization, Other)
  Sender: FDA-Public Use
  Company Number: None

PATIENT
  Age: 25 Year
  Sex: Female

DRUGS (1)
  1. FIRAZYR [Suspect]
     Active Substance: ICATIBANT ACETATE
     Indication: ANGIOEDEMA
     Route: 058
     Dates: start: 20141120, end: 20150416

REACTIONS (4)
  - Swelling face [None]
  - Injection site urticaria [None]
  - Liver function test abnormal [None]
  - Rash [None]

NARRATIVE: CASE EVENT DATE: 20150416
